FAERS Safety Report 19012397 (Version 1)
Quarter: 2021Q1

REPORT INFORMATION
  Report Type: Spontaneous
  Country: US (occurrence: US)
  Receive Date: 20210315
  Receipt Date: 20210315
  Transmission Date: 20210420
  Serious: Yes (Hospitalization)
  Sender: FDA-Public Use
  Company Number: US-AMNEAL PHARMACEUTICALS-2021-AMRX-00869

PATIENT
  Age: 22 Year
  Sex: Male

DRUGS (5)
  1. BACLOFEN. [Suspect]
     Active Substance: BACLOFEN
     Indication: QUADRIPLEGIA
     Dosage: INTRATHECAL PUMP
     Route: 037
     Dates: start: 2013
  2. BACLOFEN. [Suspect]
     Active Substance: BACLOFEN
     Dosage: UNK UNK, EVERY 8HR
  3. BACLOFEN. [Suspect]
     Active Substance: BACLOFEN
     Dosage: UNK; PUMP REPLACEMENT FOR END OF LIFE BATTERY
     Route: 037
  4. BACLOFEN. [Suspect]
     Active Substance: BACLOFEN
     Dosage: UNK UNK, EVERY 12HR
  5. BACLOFEN. [Suspect]
     Active Substance: BACLOFEN
     Dosage: UNK UNK, EVERY 6HR

REACTIONS (2)
  - Drug withdrawal syndrome [Recovered/Resolved]
  - Rhabdomyolysis [Recovered/Resolved]
